FAERS Safety Report 14957722 (Version 1)
Quarter: 2018Q2

REPORT INFORMATION
  Report Type: Spontaneous
  Country: US (occurrence: US)
  Receive Date: 20180531
  Receipt Date: 20180531
  Transmission Date: 20180711
  Serious: Yes (Hospitalization)
  Sender: FDA-Public Use
  Company Number: US-NOVOPROD-601932

PATIENT
  Age: 72 Year
  Sex: Female
  Weight: 74.83 kg

DRUGS (2)
  1. NOVOLOG [Concomitant]
     Active Substance: INSULIN ASPART
     Indication: TYPE 2 DIABETES MELLITUS
     Dosage: AS NEEDED AT MEALTIME
     Route: 058
     Dates: start: 2016
  2. TRESIBA [Suspect]
     Active Substance: INSULIN DEGLUDEC
     Indication: TYPE 2 DIABETES MELLITUS
     Dosage: 26 U, QD AT NIGHT
     Route: 058
     Dates: start: 20180401, end: 20180430

REACTIONS (4)
  - Headache [Recovered/Resolved]
  - Atrial fibrillation [Not Recovered/Not Resolved]
  - Stress [Recovered/Resolved]
  - Crying [Recovering/Resolving]

NARRATIVE: CASE EVENT DATE: 201804
